FAERS Safety Report 9531501 (Version 1)
Quarter: 2013Q2

REPORT INFORMATION
  Report Type: Spontaneous
  Country: US (occurrence: None)
  Receive Date: 20130503
  Receipt Date: 20130503
  Transmission Date: 20140414
  Serious: No
  Sender: FDA-Public Use
  Company Number: 1000041584

PATIENT
  Age: 83 Year
  Sex: Female

DRUGS (6)
  1. DALIRESP (ROFLUMILAST) (500 MICROGRAM, TABLETS) [Suspect]
     Indication: CHRONIC OBSTRUCTIVE PULMONARY DISEASE
     Dosage: 500 MCG (500 MCG, 1 IN 1)
     Dates: start: 20121228, end: 20130103
  2. ADVAIR (SERETIDE) (SERETIDE) [Concomitant]
  3. SPIRIVA (TIOTROPIUM BROMIDE) (TIOTROPIUM BROMIDE) [Concomitant]
  4. PRO-AIR (PROCATEROL HYDROCHLORIDE) [Concomitant]
  5. FOSAMAX (ALENDRONATE SODIUM) (ALENDRONATE SODIUM) [Concomitant]
  6. LEVOTHYROXINE (LEVOTHYROXINE SODIUM) (LEVOTHYROXINE SODIUM) [Concomitant]

REACTIONS (6)
  - Diarrhoea [None]
  - Nausea [None]
  - Headache [None]
  - Decreased appetite [None]
  - Insomnia [None]
  - Dyspnoea [None]
